FAERS Safety Report 9164007 (Version 2)
Quarter: 2013Q2

REPORT INFORMATION
  Report Type: Spontaneous
  Country: US (occurrence: US)
  Receive Date: 20130314
  Receipt Date: 20130402
  Transmission Date: 20140414
  Serious: Yes (Death)
  Sender: FDA-Public Use
  Company Number: US-GILEAD-2013-0070306

PATIENT
  Age: 70 Year
  Sex: Male

DRUGS (3)
  1. LETAIRIS [Suspect]
     Indication: PULMONARY HYPERTENSION
     Dosage: 10 MG, UNK
     Route: 048
     Dates: start: 20120709, end: 20130220
  2. LETAIRIS [Suspect]
     Indication: CARDIAC VALVE DISEASE
  3. LETAIRIS [Suspect]
     Indication: UNEVALUABLE EVENT

REACTIONS (1)
  - Death [Fatal]
